FAERS Safety Report 9740111 (Version 2)
Quarter: 2014Q1

REPORT INFORMATION
  Report Type: Spontaneous
  Country: AU (occurrence: AU)
  Receive Date: 20131209
  Receipt Date: 20140220
  Transmission Date: 20141002
  Serious: Yes (Death, Hospitalization, Other)
  Sender: FDA-Public Use
  Company Number: AU-ELI_LILLY_AND_COMPANY-AU201312002153

PATIENT
  Age: 75 Year
  Sex: Female

DRUGS (7)
  1. GEMCITABINE HYDROCHLORIDE [Suspect]
     Indication: ADENOCARCINOMA PANCREAS
     Dosage: UNK
     Dates: start: 201103, end: 20111010
  2. ATENOLOL [Concomitant]
  3. FRUSEMIDE [Concomitant]
  4. MELOXICAM [Concomitant]
     Dosage: UNK
  5. DIGOXIN [Concomitant]
  6. ASPIRIN [Concomitant]
  7. PANCREATIC ENZYMES [Concomitant]

REACTIONS (8)
  - Death [Fatal]
  - Thrombotic microangiopathy [Unknown]
  - Convulsion [Unknown]
  - Renal failure acute [Unknown]
  - Fluid overload [Unknown]
  - Pulmonary embolism [Unknown]
  - Hypertension [Unknown]
  - Malignant neoplasm progression [Unknown]
